FAERS Safety Report 8584421-1 (Version None)
Quarter: 2012Q3

REPORT INFORMATION
  Report Type: 
  Country: None (occurrence: None)
  Receive Date: 20120810
  Receipt Date: 20120801
  Transmission Date: 20120928
  Serious: Yes (Death, Other)
  Sender: FDA-Public Use
  Company Number: JP-BRISTOL-MYERS SQUIBB COMPANY-16832735

PATIENT
  Age: 61 Year
  Sex: Female
  Weight: 41 kg

DRUGS (2)
  1. GEMCITABINE HYDROCHLORIDE [Suspect]
     Indication: GALLBLADDER CANCER
  2. CISPLATIN [Suspect]
     Indication: GALLBLADDER CANCER
     Route: 042

REACTIONS (3)
  - HAEMORRHAGIC ANAEMIA [None]
  - DEEP VEIN THROMBOSIS [None]
  - CEREBRAL INFARCTION [None]
